FAERS Safety Report 5329677-3 (Version None)
Quarter: 2007Q2

REPORT INFORMATION
  Report Type: 
  Country: None (occurrence: None)
  Receive Date: 20070227
  Receipt Date: 20060710
  Transmission Date: 20071010
  Serious: No
  Sender: FDA-Public Use
  Company Number: 417844

PATIENT
  Sex: Male
  Weight: 3.3 kg

DRUGS (1)
  1. ISOTRETINOIN [Suspect]
     Indication: ACNE
     Dosage: 40 MG DAILY ORAL
     Route: 048
     Dates: start: 20050615

REACTIONS (2)
  - NORMAL NEWBORN [None]
  - PREMATURE LABOUR [None]
